FAERS Safety Report 4334013-5 (Version None)
Quarter: 2004Q2

REPORT INFORMATION
  Report Type: 
  Country: None (occurrence: None)
  Receive Date: 20040402
  Receipt Date: 20040325
  Transmission Date: 20050107
  Serious: Yes (Hospitalization)
  Sender: FDA-Public Use
  Company Number: 2004204067JP

PATIENT
  Age: 5 Year
  Sex: Male
  Weight: 10.9 kg

DRUGS (5)
  1. GENOTROPIN [Suspect]
     Indication: SMALL FOR DATES BABY
     Dosage: 0.067  MG/KG, QD, SUBCUTANEOUS
     Route: 058
     Dates: start: 20020315
  2. THEO-DUR [Concomitant]
  3. BECOTIDE (BECLOMETASONE DIPROPIONATE) [Concomitant]
  4. ELECTROLYTE SOLUTIONS [Concomitant]
  5. FLUMARIN (FLOMOXEF SODIUM) [Concomitant]

REACTIONS (1)
  - GASTROENTERITIS [None]
